FAERS Safety Report 9483990 (Version 2)
Quarter: 2013Q3

REPORT INFORMATION
  Report Type: Spontaneous
  Country: CA (occurrence: CA)
  Receive Date: 20130828
  Receipt Date: 20130828
  Transmission Date: 20140515
  Serious: Yes (Hospitalization)
  Sender: FDA-Public Use
  Company Number: CA-AMGEN-KDL326114

PATIENT
  Age: 56 Year
  Sex: Female
  Weight: 82.6 kg

DRUGS (6)
  1. ENBREL [Suspect]
     Indication: RHEUMATOID ARTHRITIS
     Dosage: UNK UNK, 2 TIMES/WK
     Route: 058
     Dates: start: 20080207, end: 200811
  2. METHOTREXATE [Concomitant]
     Dosage: UNK UNK, UNK
     Route: 048
  3. BISOPROLOL FUMARATE [Concomitant]
  4. CYCLOBENZAPRINE HYDROCHLORIDE [Concomitant]
  5. IBUPROFEN [Concomitant]
  6. ZOPICLONE [Concomitant]

REACTIONS (3)
  - Pneumonia [Recovering/Resolving]
  - Injection site infection [Unknown]
  - Immune system disorder [Unknown]
